FAERS Safety Report 23052961 (Version 1)
Quarter: 2023Q4

REPORT INFORMATION
  Report Type: Spontaneous
  Country: GB (occurrence: GB)
  Receive Date: 20231011
  Receipt Date: 20231011
  Transmission Date: 20240110
  Serious: Yes (Life-Threatening, Hospitalization, Disabling, Other)
  Sender: FDA-Public Use
  Company Number: GB-MHRA-MED-202310030638305480-CMWPL

PATIENT
  Age: 41 Year
  Sex: Female

DRUGS (1)
  1. QUETIAPINE [Suspect]
     Active Substance: QUETIAPINE
     Indication: Mixed anxiety and depressive disorder
     Dosage: 25MG TO START, BUT A MAJORITY OF THE TIME WAS 350MG (DESPITE THE WORSENING SIDE EFFECTS!); ;
     Route: 065
     Dates: start: 20230206, end: 20230903

REACTIONS (41)
  - Crying [Recovering/Resolving]
  - Suicidal behaviour [Recovered/Resolved with Sequelae]
  - Suicidal ideation [Recovered/Resolved with Sequelae]
  - Panic attack [Recovered/Resolved with Sequelae]
  - Heart rate abnormal [Recovered/Resolved with Sequelae]
  - Personality change [Not Recovered/Not Resolved]
  - Muscle spasms [Recovering/Resolving]
  - Muscle rigidity [Recovering/Resolving]
  - Inappropriate affect [Recovered/Resolved]
  - Depression suicidal [Recovered/Resolved with Sequelae]
  - Agoraphobia [Not Recovered/Not Resolved]
  - Anxiety [Not Recovered/Not Resolved]
  - Anxiety [Recovered/Resolved with Sequelae]
  - Social anxiety disorder [Not Recovered/Not Resolved]
  - Psychotic disorder [Recovered/Resolved with Sequelae]
  - Paranoia [Recovered/Resolved with Sequelae]
  - Psychotic disorder [Recovered/Resolved with Sequelae]
  - Depersonalisation/derealisation disorder [Recovered/Resolved with Sequelae]
  - Mental disorder [Not Recovered/Not Resolved]
  - Dissociative disorder [Recovered/Resolved with Sequelae]
  - Dissociative amnesia [Recovering/Resolving]
  - Insomnia [Not Recovered/Not Resolved]
  - Agitation [Not Recovered/Not Resolved]
  - Psychomotor hyperactivity [Not Recovered/Not Resolved]
  - Feeling abnormal [Recovering/Resolving]
  - Feeling abnormal [Recovered/Resolved]
  - Anger [Recovering/Resolving]
  - Persistent depressive disorder [Recovered/Resolved with Sequelae]
  - Major depression [Recovered/Resolved with Sequelae]
  - Intermittent explosive disorder [Recovered/Resolved with Sequelae]
  - Feeling abnormal [Recovered/Resolved]
  - Dissociation [Not Recovered/Not Resolved]
  - Patient isolation [Not Recovered/Not Resolved]
  - Confusional state [Recovered/Resolved]
  - Body temperature fluctuation [Not Recovered/Not Resolved]
  - Dyskinesia [Recovered/Resolved with Sequelae]
  - Cognitive disorder [Recovered/Resolved with Sequelae]
  - Cognitive disorder [Recovered/Resolved]
  - Coordination abnormal [Recovered/Resolved with Sequelae]
  - Tardive dyskinesia [Recovered/Resolved with Sequelae]
  - Nightmare [Recovering/Resolving]
